FAERS Safety Report 7341196-1 (Version None)
Quarter: 2011Q1

REPORT INFORMATION
  Report Type: 
  Country: None (occurrence: None)
  Receive Date: 20110309
  Receipt Date: 20100903
  Transmission Date: 20110831
  Serious: Yes (Life-Threatening)
  Sender: FDA-Public Use
  Company Number: Z0005574A

PATIENT
  Sex: Female
  Weight: 64 kg

DRUGS (4)
  1. OFATUMUMAB [Suspect]
     Route: 042
     Dates: start: 20100526
  2. CYCLOPHOSPHAMIDE [Suspect]
     Route: 042
     Dates: start: 20100526
  3. FLUDARA [Suspect]
     Route: 042
     Dates: start: 20100526
  4. ACYCLOVIR [Suspect]
     Indication: HERPES ZOSTER
     Dosage: 800MG TWICE PER DAY
     Route: 048
     Dates: start: 20100818, end: 20100831

REACTIONS (1)
  - NEUTROPENIA [None]
